FAERS Safety Report 7404078-2 (Version None)
Quarter: 2011Q1

REPORT INFORMATION
  Report Type: 
  Country: None (occurrence: None)
  Receive Date: 20110331
  Receipt Date: 20110318
  Transmission Date: 20110831
  Serious: Yes (Hospitalization)
  Sender: FDA-Public Use
  Company Number: FR-1185524

PATIENT
  Age: 61 Year
  Sex: Male

DRUGS (9)
  1. COSOPT [Suspect]
     Dosage: (OPHTHALMIC)
     Route: 047
     Dates: start: 20101101, end: 20110121
  2. GENTAMICIN [Concomitant]
  3. TRUSOPT [Suspect]
     Dosage: (OPHTHALMIC)
     Route: 047
     Dates: start: 20101101, end: 20110121
  4. TOBRADEX [Suspect]
     Dosage: (OPHTHALMIC)
     Route: 047
     Dates: start: 20101126
  5. ROCEPHIN [Concomitant]
  6. TRAVATAN [Concomitant]
  7. KAYEXALATE [Concomitant]
  8. DIAMOX [Suspect]
     Dosage: (ORAL)
     Route: 048
     Dates: start: 20101123, end: 20101223
  9. ACETAMINOPHEN [Concomitant]

REACTIONS (2)
  - SINUS TACHYCARDIA [None]
  - DRUG RASH WITH EOSINOPHILIA AND SYSTEMIC SYMPTOMS [None]
